FAERS Safety Report 6478475-6 (Version None)
Quarter: 2009Q4

REPORT INFORMATION
  Report Type: 
  Country: None (occurrence: None)
  Receive Date: 20091123
  Receipt Date: 20090814
  Transmission Date: 20100525
  Serious: No
  Sender: FDA-Public Use
  Company Number: 8050466

PATIENT
  Sex: Female

DRUGS (2)
  1. CIMZIA [Suspect]
     Dosage: 400 MG SC
     Route: 058
     Dates: start: 20081020
  2. ANTIBIOTICS [Concomitant]

REACTIONS (2)
  - CANDIDIASIS [None]
  - FREQUENT BOWEL MOVEMENTS [None]
